FAERS Safety Report 5693700-7 (Version None)
Quarter: 2008Q2

REPORT INFORMATION
  Report Type: 
  Country: None (occurrence: None)
  Receive Date: 20080403
  Receipt Date: 20080331
  Transmission Date: 20081010
  Serious: Yes (Death)
  Sender: FDA-Public Use
  Company Number: JP-AVENTIS-200713535JP

PATIENT
  Age: 68 Year
  Sex: Male
  Weight: 53 kg

DRUGS (2)
  1. TAXOTERE [Suspect]
     Route: 041
     Dates: start: 20071022, end: 20071203
  2. RADIATION [Concomitant]
     Dosage: DOSE: 60 GY/TOTAL
     Dates: start: 20071022, end: 20071203

REACTIONS (1)
  - INTERSTITIAL LUNG DISEASE [None]
